FAERS Safety Report 4778935-X (Version None)
Quarter: 2005Q3

REPORT INFORMATION
  Report Type: 
  Country: None (occurrence: None)
  Receive Date: 20050922
  Receipt Date: 20050913
  Transmission Date: 20060218
  Serious: Yes (Hospitalization)
  Sender: FDA-Public Use
  Company Number: 2005-03477

PATIENT
  Age: 51 Year
  Sex: Female

DRUGS (5)
  1. GENTAMICIN SULFATE [Suspect]
     Indication: CELLULITIS
     Dosage: 4.4 MG/KG, DAILY, INTRAVENOUS
     Route: 042
  2. CEPHALOTHIN [Concomitant]
  3. GLIMEPIRIDE [Concomitant]
  4. ASPIRIN [Concomitant]
  5. ALLOPURINOL [Concomitant]

REACTIONS (1)
  - BARTTER'S SYNDROME [None]
